FAERS Safety Report 12093490 (Version 1)
Quarter: 2016Q1

REPORT INFORMATION
  Report Type: Spontaneous
  Country: SN (occurrence: SN)
  Receive Date: 20160219
  Receipt Date: 20160219
  Transmission Date: 20160526
  Serious: Yes (Death, Hospitalization, Other)
  Sender: FDA-Public Use
  Company Number: SN-IMPAX LABORATORIES, INC-2016-IPXL-00173

PATIENT
  Age: 56 Year
  Sex: Female
  Weight: 57 kg

DRUGS (4)
  1. URSODIOL. [Suspect]
     Active Substance: URSODIOL
     Dosage: 1200 MG, DAILY
     Route: 065
  2. PREDNISONE. [Concomitant]
     Active Substance: PREDNISONE
     Indication: BILIARY CIRRHOSIS PRIMARY
     Dosage: 10 MG, DAILY
     Route: 065
  3. AZATHIOPRINE. [Suspect]
     Active Substance: AZATHIOPRINE
     Indication: BILIARY CIRRHOSIS PRIMARY
     Dosage: 50 MG, DAILY
     Route: 065
  4. URSODIOL. [Suspect]
     Active Substance: URSODIOL
     Indication: BILIARY CIRRHOSIS PRIMARY
     Dosage: 800 MG, DAILY
     Route: 065

REACTIONS (10)
  - Varices oesophageal [Not Recovered/Not Resolved]
  - Retroperitoneal haematoma [Recovered/Resolved]
  - Drug resistance [Unknown]
  - Coma [Not Recovered/Not Resolved]
  - Subdural haematoma [Unknown]
  - Hepatic failure [Fatal]
  - Generalised tonic-clonic seizure [Not Recovered/Not Resolved]
  - Pancytopenia [Recovered/Resolved]
  - Portal hypertensive gastropathy [Unknown]
  - Foetor hepaticus [Not Recovered/Not Resolved]

NARRATIVE: CASE EVENT DATE: 201106
